FAERS Safety Report 9210355 (Version 1)
Quarter: 2013Q2

REPORT INFORMATION
  Report Type: Spontaneous
  Country: BR (occurrence: BR)
  Receive Date: 20130404
  Receipt Date: 20130404
  Transmission Date: 20140414
  Serious: Yes (Other)
  Sender: FDA-Public Use
  Company Number: BR-ASTRAZENECA-2013SE20597

PATIENT
  Age: 85 Year
  Sex: Female

DRUGS (7)
  1. ATACAND HCT [Suspect]
     Indication: HYPERTENSION
     Dosage: 16 + 12.5 MG DAILY
     Route: 048
     Dates: start: 2012, end: 201303
  2. ATACAND COMB [Suspect]
     Indication: HYPERTENSION
     Dosage: 16 +2.5 MG: 1 TABLET OF CANDESARTAN CILEXETIL BY MORNING AND ONE TABLET OF FELODIPINE AT NIGHT
     Route: 048
     Dates: start: 201303
  3. NEXIUM [Suspect]
     Indication: GASTRITIS PROPHYLAXIS
     Route: 048
     Dates: start: 201211
  4. PANTOPRAZOLE [Suspect]
     Indication: GASTRITIS PROPHYLAXIS
     Route: 065
     Dates: end: 201211
  5. LASIX [Concomitant]
  6. COUMADIN [Concomitant]
  7. ATLANSIL [Concomitant]

REACTIONS (4)
  - Drug ineffective [Recovered/Resolved]
  - Hypertension [Recovered/Resolved]
  - Malaise [Recovered/Resolved]
  - Off label use [Not Recovered/Not Resolved]
